FAERS Safety Report 6827479-X (Version None)
Quarter: 2010Q3

REPORT INFORMATION
  Report Type: 
  Country: None (occurrence: None)
  Receive Date: 20100709
  Receipt Date: 20070117
  Transmission Date: 20110219
  Serious: No
  Sender: FDA-Public Use
  Company Number: US-PFIZER INC-2007005433

PATIENT
  Sex: Female
  Weight: 77.11 kg

DRUGS (1)
  1. CHANTIX [Suspect]
     Indication: SMOKING CESSATION THERAPY
     Dates: start: 20060101

REACTIONS (6)
  - ABNORMAL DREAMS [None]
  - ANXIETY [None]
  - CONSTIPATION [None]
  - DISTURBANCE IN ATTENTION [None]
  - FATIGUE [None]
  - SLEEP DISORDER [None]
